FAERS Safety Report 5698127-X (Version None)
Quarter: 2008Q2

REPORT INFORMATION
  Report Type: 
  Country: None (occurrence: None)
  Receive Date: 20080408
  Receipt Date: 20080327
  Transmission Date: 20081010
  Serious: Yes (Other)
  Sender: FDA-Public Use
  Company Number: US-PFIZER INC-2008028024

PATIENT
  Sex: Female
  Weight: 72.7 kg

DRUGS (10)
  1. CHANTIX [Suspect]
     Indication: SMOKING CESSATION THERAPY
  2. CYMBALTA [Concomitant]
     Route: 048
  3. ABILIFY [Concomitant]
     Route: 048
  4. CYTOMEL [Concomitant]
     Route: 048
  5. METFORMIN HCL [Concomitant]
     Route: 048
  6. KLONOPIN [Concomitant]
     Route: 048
  7. DOXEPIN HCL [Concomitant]
     Route: 048
  8. CALCIUM [Concomitant]
     Route: 048
  9. DILANTIN [Concomitant]
     Route: 048
  10. ANTIBIOTICS [Concomitant]

REACTIONS (2)
  - STAPHYLOCOCCAL INFECTION [None]
  - TOOTH LOSS [None]
